FAERS Safety Report 11592607 (Version 1)
Quarter: 2015Q4

REPORT INFORMATION
  Report Type: Spontaneous
  Country: CH (occurrence: CH)
  Receive Date: 20151005
  Receipt Date: 20151005
  Transmission Date: 20160304
  Serious: Yes (Other)
  Sender: FDA-Public Use
  Company Number: CH-WATSON-2015-21070

PATIENT
  Sex: Female
  Weight: 75 kg

DRUGS (4)
  1. LODINE [Suspect]
     Active Substance: ETODOLAC
     Indication: ARTHRALGIA
     Dosage: 300 MG, DAILY
     Route: 048
     Dates: start: 2014, end: 20150818
  2. ACTIVELLE [Concomitant]
     Active Substance: ESTRADIOL\NORETHINDRONE ACETATE
     Indication: PRODUCT USED FOR UNKNOWN INDICATION
     Dosage: 1 MG / 0.5 MG
  3. PANTOPRAZOL [Concomitant]
     Active Substance: PANTOPRAZOLE SODIUM
     Indication: GASTROOESOPHAGEAL REFLUX DISEASE
     Dosage: 40 MG, DAILY
     Route: 048
     Dates: start: 2010
  4. LOSARTAN-HYDROCHLOROTHIAZIDE [Suspect]
     Active Substance: HYDROCHLOROTHIAZIDE\LOSARTAN
     Indication: HYPERTENSION
     Dosage: 100 MG/ 25 MG DAILY
     Route: 048
     Dates: start: 2013, end: 201508

REACTIONS (3)
  - Syncope [Unknown]
  - Loss of consciousness [Unknown]
  - Dizziness [Not Recovered/Not Resolved]

NARRATIVE: CASE EVENT DATE: 201503
